FAERS Safety Report 10425047 (Version 1)
Quarter: 2014Q3

REPORT INFORMATION
  Report Type: Spontaneous
  Country: US (occurrence: US)
  Receive Date: 20140902
  Receipt Date: 20140902
  Transmission Date: 20150326
  Serious: Yes (Hospitalization)
  Sender: FDA-Public Use
  Company Number: US-GLAXOSMITHKLINE-A1086320A

PATIENT
  Age: 37 Year
  Sex: Female

DRUGS (5)
  1. PERCOCET [Concomitant]
     Active Substance: ACETAMINOPHEN\OXYCODONE HYDROCHLORIDE
  2. LAMICTAL [Suspect]
     Active Substance: LAMOTRIGINE
     Indication: EPILEPSY
     Dosage: 200MG TWICE PER DAY
     Route: 048
  3. XANAX [Concomitant]
     Active Substance: ALPRAZOLAM
  4. TOPAMAX [Concomitant]
     Active Substance: TOPIRAMATE
  5. CITALOPRAM [Concomitant]
     Active Substance: CITALOPRAM HYDROBROMIDE

REACTIONS (2)
  - Tumour excision [Recovering/Resolving]
  - Endometriosis ablation [Recovering/Resolving]

NARRATIVE: CASE EVENT DATE: 20140813
